FAERS Safety Report 5909971-5 (Version None)
Quarter: 2008Q4

REPORT INFORMATION
  Report Type: 
  Country: None (occurrence: None)
  Receive Date: 20081006
  Receipt Date: 20081006
  Transmission Date: 20090506
  Serious: Yes (Other)
  Sender: FDA-Public Use
  Company Number: None

PATIENT
  Age: 64 Year
  Sex: Female
  Weight: 57.6068 kg

DRUGS (2)
  1. PROAIR HFA [Suspect]
     Indication: ASTHMA
     Dosage: 2 INHALATIONS  4-6 HOURS
     Dates: start: 20080919, end: 20080921
  2. PROAIR HFA [Suspect]
     Indication: MULTIPLE ALLERGIES
     Dosage: 2 INHALATIONS  4-6 HOURS
     Dates: start: 20080919, end: 20080921

REACTIONS (3)
  - CONDITION AGGRAVATED [None]
  - DRUG EFFECT DECREASED [None]
  - PRODUCT QUALITY ISSUE [None]
